FAERS Safety Report 9310816 (Version 1)
Quarter: 2013Q2

REPORT INFORMATION
  Report Type: Spontaneous
  Country: US (occurrence: None)
  Receive Date: 20130523
  Receipt Date: 20130523
  Transmission Date: 20140414
  Serious: Yes (Death)
  Sender: FDA-Public Use
  Company Number: None

PATIENT
  Age: 73 Year
  Sex: Male
  Weight: 60 kg

DRUGS (1)
  1. VARENICLINE [Suspect]
     Indication: EX-TOBACCO USER
     Dosage: 1 MG BID PO
     Route: 048
     Dates: start: 20120703, end: 20120704

REACTIONS (1)
  - Death [None]
